FAERS Safety Report 5565512-6 (Version None)
Quarter: 2007Q4

REPORT INFORMATION
  Report Type: 
  Country: None (occurrence: None)
  Receive Date: 20071218
  Receipt Date: 20071207
  Transmission Date: 20080405
  Serious: Yes (Other)
  Sender: FDA-Public Use
  Company Number: FR-PFIZER INC-2007103230

PATIENT
  Age: 79 Year
  Sex: Female

DRUGS (6)
  1. TAHOR [Suspect]
     Dates: start: 20070101, end: 20071018
  2. KARDEGIC [Suspect]
  3. PLAVIX [Suspect]
  4. AMARYL [Suspect]
     Dates: start: 20070101, end: 20071005
  5. TENORMIN [Concomitant]
  6. PRITOR [Concomitant]

REACTIONS (4)
  - CELL DEATH [None]
  - CHOLESTASIS [None]
  - GAMMA-GLUTAMYLTRANSFERASE INCREASED [None]
  - TRANSAMINASES ABNORMAL [None]
